FAERS Safety Report 21677399 (Version 2)
Quarter: 2023Q1

REPORT INFORMATION
  Report Type: Report from Study
  Country: US (occurrence: US)
  Receive Date: 20221203
  Receipt Date: 20230201
  Transmission Date: 20230418
  Serious: No
  Sender: FDA-Public Use
  Company Number: US-ABBVIE-4186754

PATIENT
  Sex: Female

DRUGS (1)
  1. HUMIRA [Suspect]
     Active Substance: ADALIMUMAB
     Indication: Rheumatoid arthritis
     Dosage: CITRATE FREE
     Route: 058
     Dates: start: 20220726

REACTIONS (4)
  - Eye inflammation [Not Recovered/Not Resolved]
  - Gastritis [Not Recovered/Not Resolved]
  - Eye infection [Recovering/Resolving]
  - Sinusitis [Recovered/Resolved]
